FAERS Safety Report 4352397-9 (Version None)
Quarter: 2004Q2

REPORT INFORMATION
  Report Type: 
  Country: None (occurrence: None)
  Receive Date: 20040504
  Receipt Date: 20040312
  Transmission Date: 20050107
  Serious: Yes (Hospitalization)
  Sender: FDA-Public Use
  Company Number: 200411057FR

PATIENT
  Age: 83 Year
  Sex: Female

DRUGS (6)
  1. TRIATEC [Suspect]
     Indication: ESSENTIAL HYPERTENSION
     Route: 048
     Dates: start: 20031220, end: 20040104
  2. LASIX [Suspect]
     Route: 048
     Dates: start: 20031220, end: 20040104
  3. KALEORID [Suspect]
     Route: 048
     Dates: start: 20031220, end: 20040104
  4. HEMIGOXINE NATIVELLE [Concomitant]
     Route: 048
     Dates: start: 20031220, end: 20040104
  5. PREVISCAN [Concomitant]
     Route: 048
     Dates: start: 20031220, end: 20040104
  6. GLUCOPHAGE [Concomitant]
     Indication: DIABETES MELLITUS
     Route: 048
     Dates: end: 20040104

REACTIONS (8)
  - ACUTE RESPIRATORY DISTRESS SYNDROME [None]
  - DEHYDRATION [None]
  - DIARRHOEA [None]
  - ENTEROCOCCAL INFECTION [None]
  - HYPERKALAEMIA [None]
  - PYELONEPHRITIS [None]
  - RENAL FAILURE ACUTE [None]
  - RENAL TUBULAR NECROSIS [None]
